FAERS Safety Report 8664566 (Version 3)
Quarter: 2013Q4

REPORT INFORMATION
  Report Type: Spontaneous
  Country: US (occurrence: US)
  Receive Date: 20120713
  Receipt Date: 20131108
  Transmission Date: 20140711
  Serious: Yes (Hospitalization, Other)
  Sender: FDA-Public Use
  Company Number: US-009507513-2011SP053027

PATIENT
  Age: 42 Year
  Sex: Female
  Weight: 104.33 kg

DRUGS (1)
  1. NUVARING [Suspect]
     Indication: DYSMENORRHOEA
     Dosage: UNK
     Route: 067
     Dates: start: 200901, end: 20091109

REACTIONS (6)
  - Ligament operation [Unknown]
  - Pulmonary embolism [Recovered/Resolved]
  - Deep vein thrombosis [Recovered/Resolved]
  - Hypertension [Recovered/Resolved]
  - Tricuspid valve incompetence [Unknown]
  - Off label use [Unknown]
